FAERS Safety Report 11158405 (Version 1)
Quarter: 2015Q2

REPORT INFORMATION
  Report Type: Report from Study
  Country: KR (occurrence: KR)
  Receive Date: 20150603
  Receipt Date: 20150603
  Transmission Date: 20150821
  Serious: Yes (Hospitalization)
  Sender: FDA-Public Use
  Company Number: KR-OTSUKA-2015_002160

PATIENT
  Age: 74 Year
  Sex: Male

DRUGS (1)
  1. CILOSTAZOL. [Suspect]
     Active Substance: CILOSTAZOL
     Indication: CARDIOVASCULAR EVENT PROPHYLAXIS
     Dosage: . UNK, UNK
     Route: 065
     Dates: start: 20120403

REACTIONS (3)
  - Tendon rupture [Recovered/Resolved]
  - Tendon rupture [Recovered/Resolved]
  - Soft tissue disorder [Recovered/Resolved]

NARRATIVE: CASE EVENT DATE: 20140530
